FAERS Safety Report 11473398 (Version 1)
Quarter: 2015Q3

REPORT INFORMATION
  Report Type: Spontaneous
  Country: US (occurrence: US)
  Receive Date: 20150908
  Receipt Date: 20150908
  Transmission Date: 20151125
  Serious: No
  Sender: FDA-Public Use
  Company Number: US-AMEDRA PHARMACEUTICALS LLC-2015AMD00053

PATIENT
  Sex: Male

DRUGS (1)
  1. EPINEPHRINE. [Suspect]
     Active Substance: EPINEPHRINE
     Dosage: 0.30 MG, ONCE
     Route: 051
     Dates: start: 20150401, end: 20150401

REACTIONS (2)
  - Needle issue [None]
  - Therapeutic response decreased [Unknown]

NARRATIVE: CASE EVENT DATE: 20150401
